FAERS Safety Report 9934896 (Version 1)
Quarter: 2014Q1

REPORT INFORMATION
  Report Type: Spontaneous
  Country: US (occurrence: US)
  Receive Date: 20140228
  Receipt Date: 20140228
  Transmission Date: 20141002
  Serious: No
  Sender: FDA-Public Use
  Company Number: US-ASTRAZENECA-2013SE56228

PATIENT
  Age: 654 Month
  Sex: Male

DRUGS (1)
  1. METOPROLOL SUCCINATE [Suspect]
     Indication: CARDIAC DISORDER
     Route: 048

REACTIONS (1)
  - Feeling abnormal [Unknown]
